FAERS Safety Report 7711798-9 (Version None)
Quarter: 2011Q3

REPORT INFORMATION
  Report Type: 
  Country: None (occurrence: None)
  Receive Date: 20110822
  Receipt Date: 20110810
  Transmission Date: 20111222
  Serious: Yes (Hospitalization, Other)
  Sender: FDA-Public Use
  Company Number: 2011SP004362

PATIENT
  Age: 36 Year
  Sex: Female
  Weight: 51.7101 kg

DRUGS (3)
  1. WOMEN'S ONE A DAY VITAMIN [Concomitant]
  2. NUVARING [Suspect]
     Indication: CONTRACEPTION
     Route: 067
     Dates: start: 20070101, end: 20090130
  3. NUVARING [Suspect]
     Indication: CONTRACEPTION
     Route: 067
     Dates: start: 20080201

REACTIONS (13)
  - URINARY TRACT INFECTION [None]
  - MIGRAINE [None]
  - DEEP VEIN THROMBOSIS [None]
  - EMOTIONAL DISORDER [None]
  - CHEST PAIN [None]
  - ARRHYTHMIA [None]
  - BUNDLE BRANCH BLOCK LEFT [None]
  - DYSPNOEA [None]
  - SINUSITIS [None]
  - RESPIRATORY DISORDER [None]
  - MENTAL DISORDER [None]
  - GASTRIC DISORDER [None]
  - HYPERCOAGULATION [None]
